FAERS Safety Report 14908020 (Version 1)
Quarter: 2018Q2

REPORT INFORMATION
  Report Type: Spontaneous
  Country: US (occurrence: US)
  Receive Date: 20180517
  Receipt Date: 20180517
  Transmission Date: 20180711
  Serious: No
  Sender: FDA-Public Use
  Company Number: US-TEVA-2018-US-891837

PATIENT

DRUGS (9)
  1. ACICLOVIR [Concomitant]
     Active Substance: ACYCLOVIR
  2. ATORVASTATIN [Concomitant]
     Active Substance: ATORVASTATIN
  3. ALLOPURINOL. [Concomitant]
     Active Substance: ALLOPURINOL
  4. ZYRTEC [Concomitant]
     Active Substance: CETIRIZINE HYDROCHLORIDE
  5. PROTONIX [Concomitant]
     Active Substance: PANTOPRAZOLE SODIUM
  6. MORPHINE [Concomitant]
     Active Substance: MORPHINE
  7. COMPAZINE [Concomitant]
     Active Substance: PROCHLORPERAZINE MALEATE
  8. LORAZEPAM. [Concomitant]
     Active Substance: LORAZEPAM
  9. SYNRIBO [Suspect]
     Active Substance: OMACETAXINE MEPESUCCINATE
     Indication: CHRONIC MYELOID LEUKAEMIA
     Dosage: 2.8 MG/0.80 ML
     Dates: start: 20180427

REACTIONS (1)
  - Injection site erythema [Unknown]
